FAERS Safety Report 9571423 (Version 1)
Quarter: 2013Q1

REPORT INFORMATION
  Report Type: Spontaneous
  Country: US (occurrence: None)
  Receive Date: 20120525
  Receipt Date: 20120525
  Transmission Date: 20140127
  Serious: No
  Sender: FDA-Public Use
  Company Number: 348050

PATIENT
  Sex: Male

DRUGS (1)
  1. VICTOZA (LIRAGLUTIDE) SOLUTION FOR INJECTION, 6MG/ML [Suspect]
     Indication: PRODUCT USED FOR UNKNOWN INDICATION
     Route: 058

REACTIONS (2)
  - Erythema [None]
  - Swelling [None]
